FAERS Safety Report 9728525 (Version 3)
Quarter: 2014Q1

REPORT INFORMATION
  Report Type: Spontaneous
  Country: SZ (occurrence: None)
  Receive Date: 20131202
  Receipt Date: 20140204
  Transmission Date: 20141002
  Serious: Yes (Other)
  Sender: FDA-Public Use
  Company Number: 20130673

PATIENT
  Age: 30 Year
  Sex: Female

DRUGS (3)
  1. FERINJECT [Suspect]
     Indication: IRON DEFICIENCY ANAEMIA
     Dosage: 1 VIAL INTRAVENOUS DRIP
     Route: 041
     Dates: start: 20130718, end: 20130718
  2. COLIFOAM (HYDROCORTISONE ACETATE) [Concomitant]
  3. IMODIUM (LOPERAMIDE HYDROCHLORIDE) (LOPERAMIDE) [Concomitant]

REACTIONS (2)
  - Bronchospasm [None]
  - Dyspnoea [None]
